APPROVED DRUG PRODUCT: MYCOPHENOLATE SODIUM
Active Ingredient: MYCOPHENOLATE SODIUM
Strength: EQ 180MG BASE
Dosage Form/Route: TABLET, DELAYED RELEASE;ORAL
Application: A091248 | Product #002
Applicant: RK PHARMA INC
Approved: Jan 8, 2014 | RLD: No | RS: No | Type: DISCN